FAERS Safety Report 9092700 (Version 1)
Quarter: 2013Q1

REPORT INFORMATION
  Report Type: Spontaneous
  Country: US (occurrence: US)
  Receive Date: 20130131
  Receipt Date: 20130131
  Transmission Date: 20140127
  Serious: Yes (Hospitalization)
  Sender: FDA-Public Use
  Company Number: US-BAYER-2013-011831

PATIENT
  Age: 19 Year
  Sex: Female
  Weight: 97.51 kg

DRUGS (4)
  1. YAZ [Suspect]
     Indication: PREMENSTRUAL DYSPHORIC DISORDER
  2. MORPHINE [Concomitant]
     Indication: PAIN
  3. ZOLOFT [Concomitant]
     Indication: DEPRESSION
     Dosage: 100 MG, UNK
  4. LORAZEPAM [Concomitant]
     Dosage: 1 MG, UNK
     Dates: start: 20110707

REACTIONS (3)
  - Pulmonary embolism [None]
  - Pleural effusion [None]
  - Pneumonitis [None]
